FAERS Safety Report 4389291-3 (Version None)
Quarter: 2004Q2

REPORT INFORMATION
  Report Type: 
  Country: None (occurrence: None)
  Receive Date: 20040628
  Receipt Date: 20040614
  Transmission Date: 20050107
  Serious: Yes (Hospitalization)
  Sender: FDA-Public Use
  Company Number: 040615-0000376

PATIENT
  Age: 46 Year
  Sex: Male
  Weight: 88.4514 kg

DRUGS (12)
  1. PANHEMATIN [Suspect]
     Indication: PORPHYRIA
     Dosage: 4 MG/KG; IV
     Route: 042
     Dates: start: 20020206, end: 20020201
  2. COUMADIN [Concomitant]
  3. METHADONE HCL [Concomitant]
  4. NUTREN [Concomitant]
  5. TOPROL-XL [Concomitant]
  6. KEPPRA [Concomitant]
  7. BENTYL [Concomitant]
  8. TRAZODONE HCL [Concomitant]
  9. KLONOPIN [Concomitant]
  10. WELLBUTRIN [Concomitant]
  11. NEXIUM [Concomitant]
  12. DULCOLAX [Concomitant]

REACTIONS (9)
  - CATHETER RELATED COMPLICATION [None]
  - CORONARY ARTERY EMBOLISM [None]
  - EMBOLISM [None]
  - HEPATIC ARTERY EMBOLISM [None]
  - INFUSION RELATED REACTION [None]
  - JUGULAR VEIN THROMBOSIS [None]
  - MEDICATION ERROR [None]
  - MENTAL STATUS CHANGES [None]
  - THROMBOPHLEBITIS [None]
